FAERS Safety Report 4425442-X (Version None)
Quarter: 2004Q3

REPORT INFORMATION
  Report Type: 
  Country: None (occurrence: None)
  Receive Date: 20040813
  Receipt Date: 20040727
  Transmission Date: 20050211
  Serious: Yes (Life-Threatening, Hospitalization)
  Sender: FDA-Public Use
  Company Number: JP-ROCHE-375512

PATIENT
  Age: 77 Year
  Sex: Male
  Weight: 55 kg

DRUGS (4)
  1. TICLOPIDINE HCL [Suspect]
     Indication: CEREBRAL INFARCTION
     Route: 048
     Dates: start: 20040712, end: 20040714
  2. RADICUT [Suspect]
     Indication: CEREBRAL INFARCTION
     Route: 041
     Dates: start: 20040711, end: 20040712
  3. ATP [Suspect]
     Indication: CEREBRAL INFARCTION
     Route: 041
     Dates: start: 20040711, end: 20040712
  4. PRIMPERAN INJ [Suspect]
     Indication: DRUG USE FOR UNKNOWN INDICATION
     Route: 041
     Dates: start: 20040711, end: 20040712

REACTIONS (15)
  - ARTHRALGIA [None]
  - BLOOD CREATININE INCREASED [None]
  - BLOOD UREA INCREASED [None]
  - HAEMATURIA [None]
  - INJECTION SITE ERYTHEMA [None]
  - INJECTION SITE INDURATION [None]
  - INJECTION SITE PAIN [None]
  - INJECTION SITE SWELLING [None]
  - LEUKOCYTOSIS [None]
  - LIVER DISORDER [None]
  - POLYARTERITIS NODOSA [None]
  - PULSE PRESSURE DECREASED [None]
  - PYREXIA [None]
  - RENAL DISORDER [None]
  - THROMBOCYTOPENIA [None]
